FAERS Safety Report 5665021-X (Version None)
Quarter: 2008Q1

REPORT INFORMATION
  Report Type: 
  Country: None (occurrence: None)
  Receive Date: 20080314
  Receipt Date: 20080304
  Transmission Date: 20080703
  Serious: Yes (Other)
  Sender: FDA-Public Use
  Company Number: US-PFIZER INC-2008020651

PATIENT
  Sex: Male
  Weight: 86.363 kg

DRUGS (6)
  1. NEURONTIN [Suspect]
     Indication: NEUROPATHY PERIPHERAL
     Dates: start: 20040101, end: 20080213
  2. NEURONTIN [Suspect]
     Indication: PAIN
  3. LYRICA [Suspect]
     Indication: NEUROPATHY PERIPHERAL
     Route: 048
  4. LYRICA [Suspect]
     Indication: PAIN
  5. WARFARIN SODIUM [Concomitant]
  6. GLIPIZIDE [Concomitant]
     Indication: DIABETES MELLITUS

REACTIONS (3)
  - ABASIA [None]
  - ASTHENIA [None]
  - DRUG INEFFECTIVE [None]
